FAERS Safety Report 25486153 (Version 1)
Quarter: 2025Q2

REPORT INFORMATION
  Report Type: Spontaneous
  Country: US (occurrence: US)
  Receive Date: 20250626
  Receipt Date: 20250626
  Transmission Date: 20250717
  Serious: Yes (Other)
  Sender: JOHNSON AND JOHNSON
  Company Number: US-JNJFOC-20250624752

PATIENT
  Age: 31 Year
  Sex: Male

DRUGS (16)
  1. RISPERIDONE [Interacting]
     Active Substance: RISPERIDONE
     Indication: Delusion
     Route: 065
  2. RISPERIDONE [Interacting]
     Active Substance: RISPERIDONE
     Dosage: DOSE WAS INCREASED TO 0.5MG IN AM AND 1.0MG AT HS
     Route: 065
  3. RISPERIDONE [Interacting]
     Active Substance: RISPERIDONE
  4. RISPERIDONE [Interacting]
     Active Substance: RISPERIDONE
  5. RISPERIDONE [Interacting]
     Active Substance: RISPERIDONE
  6. RISPERIDONE [Interacting]
     Active Substance: RISPERIDONE
  7. VALPROIC ACID [Interacting]
     Active Substance: VALPROIC ACID
     Indication: Aggression
     Route: 065
  8. VALPROIC ACID [Interacting]
     Active Substance: VALPROIC ACID
     Indication: Euphoric mood
  9. CLONAZEPAM [Interacting]
     Active Substance: CLONAZEPAM
     Indication: Anxiety
     Dosage: AM
     Route: 065
  10. CLONAZEPAM [Interacting]
     Active Substance: CLONAZEPAM
     Dosage: 0.25 MG IN AM AND 0.5MG AT HS
  11. CLONAZEPAM [Interacting]
     Active Substance: CLONAZEPAM
     Dosage: DOSE INCREASED
  12. CLONIDINE [Interacting]
     Active Substance: CLONIDINE
     Indication: Anxiety
     Dosage: AT DINNER TIME
     Route: 065
  13. MODAFINIL [Interacting]
     Active Substance: MODAFINIL
     Indication: Somnolence
     Dosage: AM
     Route: 065
  14. SERTRALINE [Interacting]
     Active Substance: SERTRALINE HYDROCHLORIDE
     Indication: Anxiety
     Dosage: DOSE WAS INCREASED EVERY OTHER MONTH TO A DOSE OF 200 MG/DAY
     Route: 065
  15. LITHIUM [Concomitant]
     Active Substance: LITHIUM
     Indication: Aggression
  16. LITHIUM [Concomitant]
     Active Substance: LITHIUM
     Indication: Euphoric mood
     Dosage: DECREASED

REACTIONS (5)
  - Affective disorder [Recovering/Resolving]
  - Behaviour disorder [Recovering/Resolving]
  - Drug interaction [Recovering/Resolving]
  - Condition aggravated [Recovering/Resolving]
  - Extrapyramidal disorder [Recovering/Resolving]
